FAERS Safety Report 9922336 (Version 1)
Quarter: 2014Q1

REPORT INFORMATION
  Report Type: Spontaneous
  Country: US (occurrence: None)
  Receive Date: 20140224
  Receipt Date: 20140224
  Transmission Date: 20141002
  Serious: Yes (Other)
  Sender: FDA-Public Use
  Company Number: None

PATIENT
  Age: 53 Year
  Sex: Female
  Weight: 94.35 kg

DRUGS (4)
  1. OXYCODONE/ACETAMINOPHEN [Suspect]
     Indication: PAIN MANAGEMENT
     Dosage: 10MG/325, THREE TIMES DAILY, TAKEN BY MOUTH
     Route: 048
     Dates: start: 20140218, end: 20140223
  2. OXYCODONE/ACETAMINOPHEN [Suspect]
     Indication: FIBROMYALGIA
     Dosage: 10MG/325, THREE TIMES DAILY, TAKEN BY MOUTH
     Route: 048
     Dates: start: 20140218, end: 20140223
  3. OXYCODONE/ACETAMINOPHEN [Suspect]
     Indication: OSTEOARTHRITIS
     Dosage: 10MG/325, THREE TIMES DAILY, TAKEN BY MOUTH
     Route: 048
     Dates: start: 20140218, end: 20140223
  4. OXYCODONE/ACETAMINOPHEN [Suspect]
     Indication: SCIATICA
     Dosage: 10MG/325, THREE TIMES DAILY, TAKEN BY MOUTH
     Route: 048
     Dates: start: 20140218, end: 20140223

REACTIONS (8)
  - Dizziness [None]
  - Dyspnoea [None]
  - Chest discomfort [None]
  - Nausea [None]
  - Headache [None]
  - Malaise [None]
  - Product taste abnormal [None]
  - Product quality issue [None]
